FAERS Safety Report 5083776-2 (Version None)
Quarter: 2006Q3

REPORT INFORMATION
  Report Type: 
  Country: None (occurrence: None)
  Receive Date: 20060817
  Receipt Date: 20060817
  Transmission Date: 20061208
  Serious: No
  Sender: FDA-Public Use
  Company Number: None

PATIENT
  Age: 25 Year
  Sex: Male
  Weight: 99.7913 kg

DRUGS (1)
  1. MONONINE [Suspect]
     Indication: FACTOR VIII DEFICIENCY
     Dosage: 915 IU  PRN  IV
     Route: 042
     Dates: start: 20060814

REACTIONS (6)
  - DIPLOPIA [None]
  - DIZZINESS [None]
  - FLUSHING [None]
  - HYPOAESTHESIA ORAL [None]
  - INFUSION RELATED REACTION [None]
  - NAUSEA [None]
